FAERS Safety Report 21664544 (Version 1)
Quarter: 2022Q4

REPORT INFORMATION
  Report Type: Spontaneous
  Country: US (occurrence: None)
  Receive Date: 20221129
  Receipt Date: 20221129
  Transmission Date: 20230113
  Serious: Yes (Other)
  Sender: FDA-Public Use
  Company Number: None

PATIENT
  Age: 36 Year
  Sex: Female

DRUGS (2)
  1. SUMATRIPTAN [Suspect]
     Active Substance: SUMATRIPTAN
     Indication: Migraine
     Dosage: FREQUENCY : AS NEEDED;?
     Route: 048
  2. ASPIRIN [Concomitant]
     Active Substance: ASPIRIN

REACTIONS (7)
  - Exposure during pregnancy [None]
  - Maternal drugs affecting foetus [None]
  - Twin pregnancy [None]
  - Delivery [None]
  - Postpartum haemorrhage [None]
  - Perineal injury [None]
  - Pre-eclampsia [None]

NARRATIVE: CASE EVENT DATE: 20221018
